FAERS Safety Report 20952168 (Version 1)
Quarter: 2022Q2

REPORT INFORMATION
  Report Type: Spontaneous
  Country: BR (occurrence: BR)
  Receive Date: 20220613
  Receipt Date: 20220613
  Transmission Date: 20220721
  Serious: Yes (Other)
  Sender: FDA-Public Use
  Company Number: BR-TAKEDA-2022TUS038925

PATIENT
  Sex: Male
  Weight: 48 kg

DRUGS (1)
  1. MESALAMINE [Suspect]
     Active Substance: MESALAMINE
     Indication: Haemorrhage
     Dosage: 500 MILLIGRAM
     Route: 065

REACTIONS (3)
  - Haemorrhage [Recovering/Resolving]
  - Poor quality product administered [Unknown]
  - Drug ineffective [Unknown]
